FAERS Safety Report 5328748-5 (Version None)
Quarter: 2007Q2

REPORT INFORMATION
  Report Type: 
  Country: None (occurrence: None)
  Receive Date: 20070516
  Receipt Date: 20070516
  Transmission Date: 20071010
  Serious: No
  Sender: FDA-Public Use
  Company Number: None

PATIENT
  Age: 33 Year
  Sex: Female
  Weight: 63.2 kg

DRUGS (1)
  1. CUBICIN [Suspect]
     Indication: OSTEOMYELITIS
     Dosage: 390MG DAILY IV
     Route: 042
     Dates: start: 20070419, end: 20070503

REACTIONS (4)
  - DYSTONIA [None]
  - HYPOAESTHESIA [None]
  - JAW DISORDER [None]
  - TONGUE DISORDER [None]
